FAERS Safety Report 9822883 (Version 2)
Quarter: 2014Q1

REPORT INFORMATION
  Report Type: Report from Study
  Country: FR (occurrence: FR)
  Receive Date: 20140116
  Receipt Date: 20140203
  Transmission Date: 20141002
  Serious: Yes (Death)
  Sender: FDA-Public Use
  Company Number: FR-CELGENEUS-056-C4047-14011891

PATIENT
  Age: 62 Year
  Sex: Female
  Weight: 46 kg

DRUGS (6)
  1. CC-4047 [Suspect]
     Indication: PLASMA CELL MYELOMA
     Dosage: 4 MILLIGRAM
     Route: 048
     Dates: start: 20130920, end: 20131010
  2. DEXAMETHASONE [Concomitant]
     Indication: PLASMA CELL MYELOMA
     Dosage: 20 MILLIGRAM
     Route: 065
     Dates: start: 20130920
  3. DEXAMETHASONE [Concomitant]
     Route: 065
     Dates: start: 200308, end: 200312
  4. DEXAMETHASONE [Concomitant]
     Route: 065
     Dates: start: 201205, end: 201206
  5. DEXAMETHASONE [Concomitant]
     Route: 065
     Dates: start: 201305, end: 201306
  6. ASPEGIC [Concomitant]
     Indication: THROMBOSIS PROPHYLAXIS
     Route: 065

REACTIONS (1)
  - Plasma cell myeloma [Fatal]
